FAERS Safety Report 7275844-1 (Version None)
Quarter: 2011Q1

REPORT INFORMATION
  Report Type: 
  Country: None (occurrence: None)
  Receive Date: 20110204
  Receipt Date: 20110124
  Transmission Date: 20110831
  Serious: Yes (Other)
  Sender: FDA-Public Use
  Company Number: ES-JNJFOC-20110106941

PATIENT
  Age: 41 Year
  Sex: Male

DRUGS (3)
  1. MESALAZINE [Suspect]
     Indication: CROHN'S DISEASE
     Dosage: SUBTHERAPEUTIC DOSE
  2. AZATHIOPRINE [Suspect]
     Indication: CROHN'S DISEASE
     Dosage: SUBTHERAPEUTIC DOSE
  3. REMICADE [Suspect]
     Indication: CROHN'S DISEASE
     Route: 042

REACTIONS (1)
  - ADENOCARCINOMA [None]
